FAERS Safety Report 24155045 (Version 1)
Quarter: 2024Q3

REPORT INFORMATION
  Report Type: Spontaneous
  Country: GB (occurrence: GB)
  Receive Date: 20240731
  Receipt Date: 20240731
  Transmission Date: 20241017
  Serious: Yes (Other)
  Sender: AUROBINDO
  Company Number: GB-MHRA-MED-202407201634330970-JDYGN

PATIENT
  Age: 60 Year
  Sex: Female
  Weight: 89 kg

DRUGS (1)
  1. AMLODIPINE [Suspect]
     Active Substance: AMLODIPINE BESYLATE
     Indication: Blood pressure measurement
     Dosage: 5 MILLIGRAM
     Route: 065
     Dates: start: 20240701

REACTIONS (1)
  - Swelling of eyelid [Not Recovered/Not Resolved]
